FAERS Safety Report 7222964-3 (Version None)
Quarter: 2011Q1

REPORT INFORMATION
  Report Type: 
  Country: None (occurrence: None)
  Receive Date: 20110112
  Receipt Date: 20101209
  Transmission Date: 20110831
  Serious: Yes (Other)
  Sender: FDA-Public Use
  Company Number: PHHY2010JP87867

PATIENT
  Age: 35 Year
  Sex: Female

DRUGS (1)
  1. METHERGINE [Suspect]
     Indication: UTERINE CONTRACTIONS DURING PREGNANCY
     Dosage: 0.2 MG
     Route: 042

REACTIONS (6)
  - PULMONARY OEDEMA [None]
  - PULMONARY ARTERIAL PRESSURE INCREASED [None]
  - HYPOXIA [None]
  - PULMONARY THROMBOSIS [None]
  - PULMONARY ALVEOLAR HAEMORRHAGE [None]
  - PULMONARY ARTERIAL WEDGE PRESSURE INCREASED [None]
